FAERS Safety Report 20222184 (Version 2)
Quarter: 2021Q4

REPORT INFORMATION
  Report Type: Spontaneous
  Country: US (occurrence: US)
  Receive Date: 20211223
  Receipt Date: 20211231
  Transmission Date: 20220303
  Serious: No
  Sender: FDA-Public Use
  Company Number: US-ORGANON-O2112USA001604

PATIENT
  Age: 34 Year
  Sex: Female

DRUGS (2)
  1. ASMANEX [Suspect]
     Active Substance: MOMETASONE FUROATE
     Indication: Asthma
     Dosage: 1 PUFF PER DAY
     Dates: start: 20211209
  2. ASMANEX [Concomitant]
     Active Substance: MOMETASONE FUROATE
     Dosage: UNK
     Dates: start: 2016

REACTIONS (4)
  - Therapeutic product effect decreased [Not Recovered/Not Resolved]
  - Device malfunction [Unknown]
  - Incorrect dose administered [Unknown]
  - Poor quality device used [Unknown]

NARRATIVE: CASE EVENT DATE: 20211209
